FAERS Safety Report 18231933 (Version 1)
Quarter: 2020Q3

REPORT INFORMATION
  Report Type: Spontaneous
  Country: US (occurrence: US)
  Receive Date: 20200904
  Receipt Date: 20200904
  Transmission Date: 20201103
  Serious: Yes (Other)
  Sender: FDA-Public Use
  Company Number: US-MYLANLABS-2020M1076236

PATIENT
  Age: 80 Year
  Sex: Female

DRUGS (4)
  1. FLUOROURACIL. [Suspect]
     Active Substance: FLUOROURACIL
     Indication: SQUAMOUS CELL CARCINOMA
     Dosage: 2 G/M2
     Route: 065
  2. MITOMYCIN. [Suspect]
     Active Substance: MITOMYCIN
     Indication: METASTATIC NEOPLASM
  3. MITOMYCIN. [Suspect]
     Active Substance: MITOMYCIN
     Indication: SQUAMOUS CELL CARCINOMA
     Dosage: 12 MILLIGRAM/SQ. METER
     Route: 065
  4. FLUOROURACIL. [Suspect]
     Active Substance: FLUOROURACIL
     Indication: METASTATIC NEOPLASM
     Dosage: 400 MILLIGRAM/SQ. METER
     Route: 065

REACTIONS (4)
  - Diarrhoea [Unknown]
  - Fatigue [Unknown]
  - Enteritis [Recovered/Resolved]
  - Mucosal inflammation [Recovered/Resolved]
